FAERS Safety Report 11350324 (Version 1)
Quarter: 2015Q3

REPORT INFORMATION
  Report Type: Spontaneous
  Country: JP (occurrence: JP)
  Receive Date: 20150807
  Receipt Date: 20150807
  Transmission Date: 20151125
  Serious: Yes (Hospitalization)
  Sender: FDA-Public Use
  Company Number: JP-PFIZER INC-2015253463

PATIENT
  Age: 50 Year
  Sex: Male

DRUGS (1)
  1. AMLODIPINE BESILATE [Suspect]
     Active Substance: AMLODIPINE BESYLATE
     Dosage: 40 TABLETS OF 5 MG
     Route: 048

REACTIONS (4)
  - Metabolic acidosis [Unknown]
  - Intentional overdose [Unknown]
  - Hypotension [Recovering/Resolving]
  - Suicide attempt [Unknown]
